FAERS Safety Report 4569641-5 (Version None)
Quarter: 2005Q1

REPORT INFORMATION
  Report Type: 
  Country: None (occurrence: None)
  Receive Date: 20050201
  Receipt Date: 20050119
  Transmission Date: 20050727
  Serious: Yes (Death, Hospitalization)
  Sender: FDA-Public Use
  Company Number: IL-2005-000738

PATIENT
  Age: 73 Year
  Sex: Female

DRUGS (1)
  1. FLUDARA [Suspect]
     Indication: CHRONIC LYMPHOCYTIC LEUKAEMIA
     Dosage: 40 MG, CYCLES, ORAL
     Route: 048
     Dates: end: 20041201

REACTIONS (5)
  - APLASIA [None]
  - PYREXIA [None]
  - TUMOUR LYSIS SYNDROME [None]
  - WHITE BLOOD CELL COUNT DECREASED [None]
  - WHITE BLOOD CELL DISORDER [None]
